FAERS Safety Report 8373428-5 (Version None)
Quarter: 2012Q2

REPORT INFORMATION
  Report Type: 
  Country: None (occurrence: None)
  Receive Date: 20120521
  Receipt Date: 20111110
  Transmission Date: 20120825
  Serious: Yes (Other)
  Sender: FDA-Public Use
  Company Number: US-TEVA-2011005778

PATIENT
  Sex: Male

DRUGS (9)
  1. NORVASC [Concomitant]
  2. TREANDA [Suspect]
     Indication: CHRONIC LYMPHOCYTIC LEUKAEMIA
     Route: 042
     Dates: start: 20111104
  3. ASPIRIN [Concomitant]
  4. GARLIC [Concomitant]
  5. LUTEIN [Concomitant]
  6. ATENOLOL [Concomitant]
  7. NEXIUM [Concomitant]
  8. GLUCOSAMINE [Concomitant]
  9. FISH OIL [Concomitant]

REACTIONS (3)
  - PYREXIA [None]
  - TUMOUR LYSIS SYNDROME [None]
  - LIVEDO RETICULARIS [None]
